FAERS Safety Report 14229657 (Version 2)
Quarter: 2018Q3

REPORT INFORMATION
  Report Type: Spontaneous
  Country: US (occurrence: US)
  Receive Date: 20171128
  Receipt Date: 20180815
  Transmission Date: 20181010
  Serious: Yes (Other)
  Sender: FDA-Public Use
  Company Number: US-ASTRAZENECA-2017SF18628

PATIENT
  Age: 27263 Day
  Sex: Female

DRUGS (60)
  1. NEXIUM [Suspect]
     Active Substance: ESOMEPRAZOLE MAGNESIUM
     Indication: GASTROOESOPHAGEAL REFLUX DISEASE
     Route: 048
     Dates: start: 20101006
  2. GLUCOTROL [Concomitant]
     Active Substance: GLIPIZIDE
     Dosage: 24 HR TABLET? TAKE 1 TABLET (10 MG TOTAL) BY MOUTH DAILY.
     Route: 048
  3. JANUVIA [Concomitant]
     Active Substance: SITAGLIPTIN PHOSPHATE
  4. SYNTHROID [Concomitant]
     Active Substance: LEVOTHYROXINE SODIUM
     Route: 048
     Dates: start: 20101130
  5. CRESTOR [Concomitant]
     Active Substance: ROSUVASTATIN CALCIUM
     Route: 048
     Dates: start: 20100907
  6. TRAMADOL?ACETAMINOPHEN [Concomitant]
     Active Substance: ACETAMINOPHEN\TRAMADOL
     Dates: start: 20160328
  7. VENTOLIN [Concomitant]
     Active Substance: ALBUTEROL SULFATE
     Dosage: HFA 90 MCG INHALER
     Dates: start: 20160527
  8. PRAVASTATIN SODIUM. [Concomitant]
     Active Substance: PRAVASTATIN SODIUM
     Dates: start: 20160909
  9. NEXIUM [Suspect]
     Active Substance: ESOMEPRAZOLE MAGNESIUM
     Indication: GASTROOESOPHAGEAL REFLUX DISEASE
     Dosage: ESOMEPRAZOLE MAGNESIUM DR
     Dates: start: 20160115
  10. SYNTHROID [Concomitant]
     Active Substance: LEVOTHYROXINE SODIUM
     Dosage: LEVOTHYROXINE? TAKE 1 TABLET (112 MEG TOTAL) BYMOUTH DAILY. TAKE ON AN EMPTY STOMACH
     Route: 048
     Dates: start: 20141231
  11. TRADJENTA [Concomitant]
     Active Substance: LINAGLIPTIN
     Route: 048
     Dates: start: 20150119
  12. WESTCORT [Concomitant]
     Active Substance: HYDROCORTISONE VALERATE
  13. ERGOCALCIFEROL. [Concomitant]
     Active Substance: ERGOCALCIFEROL
     Dosage: 50,000 UNIT? TAKE 1 CAPSULE (50,000 UNITS TOTAL) BY MOUTH ONCE A WEEK. FOR 3 MONTHS, THEN TAKE ON...
     Route: 048
     Dates: start: 20160303
  14. TRICOR [Concomitant]
     Active Substance: FENOFIBRATE
     Dosage: FENOFIBRATE
     Dates: start: 20110912
  15. TRAMADOL HYDROCHLORIDE. [Concomitant]
     Active Substance: TRAMADOL HYDROCHLORIDE
     Route: 048
     Dates: start: 20120201
  16. GLIPIZIDE. [Concomitant]
     Active Substance: GLIPIZIDE
     Dosage: ER
     Route: 048
     Dates: start: 20120201
  17. HYDROCORTISONE VALERATE. [Concomitant]
     Active Substance: HYDROCORTISONE VALERATE
     Dates: start: 20150106
  18. OFLOXACIN. [Concomitant]
     Active Substance: OFLOXACIN
     Dosage: 0.3% EYE DROPS
     Dates: start: 20150518
  19. PREDNISOLONE ACETATE. [Concomitant]
     Active Substance: PREDNISOLONE ACETATE
     Dosage: 1% EYE DROP
     Dates: start: 20150518
  20. MELOXICAM. [Concomitant]
     Active Substance: MELOXICAM
     Route: 048
     Dates: start: 20151214
  21. PREDNISONE. [Concomitant]
     Active Substance: PREDNISONE
     Route: 048
     Dates: start: 20151229
  22. ALLOPURINOL. [Concomitant]
     Active Substance: ALLOPURINOL
     Dates: start: 20160211
  23. MIACALCIN [Concomitant]
     Active Substance: CALCITONIN SALMON
  24. GLUCOTROL [Concomitant]
     Active Substance: GLIPIZIDE
     Route: 048
     Dates: start: 20150119
  25. ONGLYZA [Concomitant]
     Active Substance: SAXAGLIPTIN HYDROCHLORIDE
     Route: 048
     Dates: start: 20111120
  26. NASONEX [Concomitant]
     Active Substance: MOMETASONE FUROATE
     Dosage: 50 MCG/ACTUATION NASAL SPRAY? 2 SPRAYS BY NASAL ROUTE DAILY.
     Dates: start: 20100123
  27. BACTROBAN [Concomitant]
     Active Substance: MUPIROCIN\MUPIROCIN CALCIUM
     Dosage: APPLY TOPICALLY DAILY.
  28. REQUIP [Concomitant]
     Active Substance: ROPINIROLE HYDROCHLORIDE
     Route: 048
     Dates: start: 20100123
  29. MUCINEX [Concomitant]
     Active Substance: GUAIFENESIN
     Route: 048
  30. NEXIUM [Suspect]
     Active Substance: ESOMEPRAZOLE MAGNESIUM
     Indication: GASTROOESOPHAGEAL REFLUX DISEASE
     Route: 048
     Dates: start: 2013, end: 2014
  31. ZANTAC [Concomitant]
     Active Substance: RANITIDINE HYDROCHLORIDE
     Route: 048
     Dates: start: 20100123
  32. COZAAR [Concomitant]
     Active Substance: LOSARTAN POTASSIUM
     Route: 048
  33. BONIVA [Concomitant]
     Active Substance: IBANDRONATE SODIUM
     Dates: start: 20100728
  34. LOSARTAN POTASSIUM. [Concomitant]
     Active Substance: LOSARTAN POTASSIUM
     Dates: start: 20110912
  35. DOXYCYCLINE HYCLATE. [Concomitant]
     Active Substance: DOXYCYCLINE HYCLATE
     Dates: start: 20120818
  36. LISINOPRIL. [Concomitant]
     Active Substance: LISINOPRIL
     Dates: start: 20150218
  37. KETOROLAC [Concomitant]
     Active Substance: KETOROLAC\KETOROLAC TROMETHAMINE
     Dosage: 0.5% OPHTH SOLUTION
     Dates: start: 20150518
  38. CALCIUM?VITAMIN D [Concomitant]
     Active Substance: CALCIUM\VITAMIN D
     Dosage: 600 MG(1,500MG) ?400 UNIT TAB?TAKE 1 TABLET BY MOUTH 2 TIMES DAILY WITH MEALS?ORAL
     Dates: start: 20150220
  39. LIPITOR [Concomitant]
     Active Substance: ATORVASTATIN CALCIUM
     Route: 048
     Dates: start: 20141014
  40. LIPITOR [Concomitant]
     Active Substance: ATORVASTATIN CALCIUM
     Dosage: GENERIC
     Route: 048
     Dates: start: 20141124
  41. ACTOS [Concomitant]
     Active Substance: PIOGLITAZONE HYDROCHLORIDE
     Route: 048
     Dates: start: 20150918
  42. AMLODIPINE BESYLATE. [Concomitant]
     Active Substance: AMLODIPINE BESYLATE
     Dates: start: 20101220
  43. FLUOXETINE HYDROCHLORIDE. [Concomitant]
     Active Substance: FLUOXETINE HYDROCHLORIDE
     Route: 048
     Dates: start: 20100902
  44. SULINDAC. [Concomitant]
     Active Substance: SULINDAC
     Dates: start: 20160123
  45. SUCRALFATE. [Concomitant]
     Active Substance: SUCRALFATE
     Dates: start: 20160624
  46. AUGMENTIN [Concomitant]
     Active Substance: AMOXICILLIN\CLAVULANATE POTASSIUM
     Dosage: 875?125 MG? TAKE 1 TABLET BY MOUTH 2 (TWO) TIMES DAILY
     Route: 048
     Dates: start: 20160502
  47. ZETIA [Concomitant]
     Active Substance: EZETIMIBE
     Route: 048
     Dates: start: 20100123
  48. AMOXICILLIN. [Concomitant]
     Active Substance: AMOXICILLIN
     Dates: start: 20140325
  49. IBUPROFEN. [Concomitant]
     Active Substance: IBUPROFEN
     Dates: start: 20140530
  50. SINEMET [Concomitant]
     Active Substance: CARBIDOPA\LEVODOPA
     Dosage: 25?100 MG PER TABLET
     Dates: start: 20100901
  51. PROZAC [Concomitant]
     Active Substance: FLUOXETINE HYDROCHLORIDE
     Route: 048
     Dates: start: 20100902
  52. ASPIRIN. [Concomitant]
     Active Substance: ASPIRIN
     Route: 048
  53. PERIDEX [Concomitant]
     Active Substance: CHLORHEXIDINE GLUCONATE
  54. HYDROCODONE? ACETAMINOPHEN [Concomitant]
     Dates: start: 20100901
  55. TRICOR [Concomitant]
     Active Substance: FENOFIBRATE
     Dates: start: 20100901
  56. VOLTAREN [Concomitant]
     Active Substance: DICLOFENAC SODIUM
     Dates: start: 20100904
  57. CYCLOBENZAPRINE. [Concomitant]
     Active Substance: CYCLOBENZAPRINE
     Dates: start: 20101011
  58. DIOVAN [Concomitant]
     Active Substance: VALSARTAN
     Dates: start: 20101123
  59. ESCITALOPRAM [Concomitant]
     Active Substance: ESCITALOPRAM OXALATE
     Dates: start: 20160115
  60. BENZONATATE. [Concomitant]
     Active Substance: BENZONATATE
     Dates: start: 20160502

REACTIONS (2)
  - Renal failure [Unknown]
  - Chronic kidney disease [Unknown]

NARRATIVE: CASE EVENT DATE: 20140623
